FAERS Safety Report 16069967 (Version 1)
Quarter: 2019Q1

REPORT INFORMATION
  Report Type: Spontaneous
  Country: US (occurrence: US)
  Receive Date: 20190314
  Receipt Date: 20190314
  Transmission Date: 20190418
  Serious: No
  Sender: FDA-Public Use
  Company Number: US-UNITED THERAPEUTICS-UNT-2019-004453

PATIENT
  Sex: Male

DRUGS (3)
  1. TADALAFIL. [Concomitant]
     Active Substance: TADALAFIL
     Indication: PRODUCT USED FOR UNKNOWN INDICATION
     Dosage: 40 MG, DAILY
     Route: 065
  2. ORENITRAM [Suspect]
     Active Substance: TREPROSTINIL
     Indication: PULMONARY ARTERIAL HYPERTENSION
     Dosage: 4 MG, TID
     Dates: start: 20181103
  3. ORENITRAM [Suspect]
     Active Substance: TREPROSTINIL
     Dosage: 5 MG, TID
     Route: 048

REACTIONS (5)
  - Myalgia [Unknown]
  - Constipation [Unknown]
  - Abdominal pain [Unknown]
  - Nausea [Unknown]
  - Drug intolerance [Unknown]
